FAERS Safety Report 13034717 (Version 1)
Quarter: 2016Q4

REPORT INFORMATION
  Report Type: Spontaneous
  Country: US (occurrence: US)
  Receive Date: 20161215
  Receipt Date: 20161215
  Transmission Date: 20170207
  Serious: No
  Sender: FDA-Public Use
  Company Number: None

PATIENT
  Age: 84 Year
  Sex: Female
  Weight: 61.06 kg

DRUGS (8)
  1. CIPROFLOXACIN 250 MG HIKMA PHARMACEUTICAL [Suspect]
     Active Substance: CIPROFLOXACIN
     Indication: URINARY TRACT INFECTION
     Dates: start: 20160728, end: 20160817
  2. COMPLETE MULTIPLE VITAMINE [Concomitant]
  3. CALCIUM [Concomitant]
     Active Substance: CALCIUM
  4. CENTRUM SENIOR [Concomitant]
  5. OCUVITE [Concomitant]
     Active Substance: VITAMINS
  6. BIOTIN [Concomitant]
     Active Substance: BIOTIN
  7. AIRBORNE [Concomitant]
     Active Substance: HERBALS\MINERALS\VITAMINS
  8. ALEGRA [Concomitant]

REACTIONS (5)
  - Infection [None]
  - Tinnitus [None]
  - Dizziness [None]
  - Vertigo [None]
  - Decreased activity [None]

NARRATIVE: CASE EVENT DATE: 20161008
